FAERS Safety Report 7780148-4 (Version None)
Quarter: 2011Q3

REPORT INFORMATION
  Report Type: 
  Country: None (occurrence: None)
  Receive Date: 20110922
  Receipt Date: 20110919
  Transmission Date: 20111222
  Serious: Yes (Other)
  Sender: FDA-Public Use
  Company Number: BR-001837

PATIENT
  Sex: Male
  Weight: 16 kg

DRUGS (3)
  1. NAGLAZYME [Suspect]
     Indication: MUCOPOLYSACCHARIDOSIS VI
     Dosage: 15 MG 1X/WEEK INTRAVENOUS DROP
     Route: 041
     Dates: start: 20090508
  2. CAPTOPRIL [Concomitant]
  3. FUROSEMIDE [Concomitant]

REACTIONS (8)
  - AORTIC VALVE INCOMPETENCE [None]
  - CARDIAC VALVE DISEASE [None]
  - ABASIA [None]
  - DILATATION VENTRICULAR [None]
  - SPINAL CORD COMPRESSION [None]
  - INCONTINENCE [None]
  - OXYGEN SATURATION DECREASED [None]
  - CONCOMITANT DISEASE AGGRAVATED [None]
